FAERS Safety Report 6917007-2 (Version None)
Quarter: 2010Q3

REPORT INFORMATION
  Report Type: 
  Country: None (occurrence: None)
  Receive Date: 20100810
  Receipt Date: 20100730
  Transmission Date: 20110219
  Serious: Yes (Other)
  Sender: FDA-Public Use
  Company Number: A0866454A

PATIENT
  Age: 52 Year
  Sex: Male
  Weight: 143.6 kg

DRUGS (1)
  1. AVANDIA [Suspect]
     Dosage: 8MG PER DAY
     Dates: start: 20011101, end: 20080901

REACTIONS (5)
  - CATHETER PLACEMENT [None]
  - FRACTURE [None]
  - MYOCARDIAL INFARCTION [None]
  - PAIN [None]
  - SEPSIS [None]
